FAERS Safety Report 4870757-4 (Version None)
Quarter: 2006Q1

REPORT INFORMATION
  Report Type: 
  Country: None (occurrence: None)
  Receive Date: 20060103
  Receipt Date: 20051223
  Transmission Date: 20060701
  Serious: Yes (Other)
  Sender: FDA-Public Use
  Company Number: US-ROCHE-430115

PATIENT
  Age: 53 Year
  Sex: Female

DRUGS (2)
  1. PEGASYS [Suspect]
     Dosage: ROUTE = INJ
     Route: 050
     Dates: start: 20051207
  2. COPEGUS [Suspect]
     Route: 048
     Dates: start: 20051207

REACTIONS (8)
  - ANOREXIA [None]
  - DYSPNOEA [None]
  - FATIGUE [None]
  - GINGIVAL BLEEDING [None]
  - HAEMOPTYSIS [None]
  - HEADACHE [None]
  - NAUSEA [None]
  - STOMACH DISCOMFORT [None]
